FAERS Safety Report 8567871-9 (Version None)
Quarter: 2012Q3

REPORT INFORMATION
  Report Type: 
  Country: None (occurrence: None)
  Receive Date: 20120803
  Receipt Date: 20120725
  Transmission Date: 20120928
  Serious: Yes (Hospitalization)
  Sender: FDA-Public Use
  Company Number: US-PFIZER INC-2012179039

PATIENT
  Sex: Male
  Weight: 74.195 kg

DRUGS (11)
  1. INOTUZUMAB OZOGAMICIN [Suspect]
     Indication: NON-HODGKIN'S LYMPHOMA
     Dosage: 1.536 MG, UNK
     Route: 042
     Dates: start: 20120719
  2. PRADAXA [Concomitant]
     Dosage: UNK
  3. CISPLATIN [Suspect]
     Indication: NON-HODGKIN'S LYMPHOMA
     Dosage: 96 MG, UNK
     Route: 042
     Dates: start: 20120718
  4. ALLOPURINOL [Concomitant]
     Dosage: UNK
     Dates: end: 20120722
  5. CRESTOR [Concomitant]
     Dosage: UNK
  6. TOPROL-XL [Concomitant]
     Dosage: UNK
  7. RITUXIMAB [Suspect]
     Indication: NON-HODGKIN'S LYMPHOMA
     Dosage: 720 MG, UNK
     Route: 042
     Dates: start: 20120718
  8. GEMCITABINE HYDROCHLORIDE [Suspect]
     Indication: NON-HODGKIN'S LYMPHOMA
     Dosage: 960 MG, UNK
     Route: 042
     Dates: start: 20120718
  9. DEXAMETHASONE ACETATE [Suspect]
     Indication: NON-HODGKIN'S LYMPHOMA
     Dosage: 40 MG, 1X/DAY, FOR 4 DAYS
     Route: 048
     Dates: start: 20120718
  10. ROXICODONE [Concomitant]
     Dosage: UNK
  11. OXYCONTIN [Concomitant]
     Dosage: UNK

REACTIONS (5)
  - VOMITING [None]
  - DEHYDRATION [None]
  - CHILLS [None]
  - ANXIETY [None]
  - INSOMNIA [None]
